FAERS Safety Report 16921877 (Version 2)
Quarter: 2019Q4

REPORT INFORMATION
  Report Type: Spontaneous
  Country: ES (occurrence: ES)
  Receive Date: 20191015
  Receipt Date: 20191203
  Transmission Date: 20200122
  Serious: Yes (Other)
  Sender: FDA-Public Use
  Company Number: NVSC2019ES001470

PATIENT
  Age: 65 Year
  Sex: Female

DRUGS (7)
  1. LEFLUNOMIDE. [Concomitant]
     Active Substance: LEFLUNOMIDE
     Indication: PLATELET COUNT DECREASED
     Route: 065
  2. PREDNISONE. [Suspect]
     Active Substance: PREDNISONE
     Indication: RENAL TRANSPLANT
     Dosage: UNK
     Route: 065
  3. BASILIXIMAB [Suspect]
     Active Substance: BASILIXIMAB
     Indication: RENAL TRANSPLANT
     Dosage: UNK
     Route: 065
  4. TACROLIMUS. [Suspect]
     Active Substance: TACROLIMUS
     Indication: RENAL TRANSPLANT
     Dosage: UNK
     Route: 065
  5. BASILIXIMAB [Suspect]
     Active Substance: BASILIXIMAB
     Indication: IMMUNOSUPPRESSANT DRUG THERAPY
  6. TACROLIMUS. [Suspect]
     Active Substance: TACROLIMUS
     Indication: IMMUNOSUPPRESSANT DRUG THERAPY
  7. PREDNISONE. [Suspect]
     Active Substance: PREDNISONE
     Indication: IMMUNOSUPPRESSANT DRUG THERAPY

REACTIONS (4)
  - Pneumonia [Unknown]
  - Delayed graft function [Unknown]
  - Product use in unapproved indication [Unknown]
  - Urinary tract infection [Unknown]
